FAERS Safety Report 7013286-4 (Version None)
Quarter: 2010Q3

REPORT INFORMATION
  Report Type: 
  Country: None (occurrence: None)
  Receive Date: 20100924
  Receipt Date: 20100913
  Transmission Date: 20110219
  Serious: Yes (Other)
  Sender: FDA-Public Use
  Company Number: PHHY2010US61371

PATIENT
  Sex: Female

DRUGS (2)
  1. ZADITOR [Suspect]
     Dosage: UNK
  2. SYNTHROID [Concomitant]
     Dosage: UNK

REACTIONS (4)
  - FIBROMYALGIA [None]
  - GLAUCOMA [None]
  - HYPERSENSITIVITY [None]
  - RHEUMATIC FEVER [None]
